FAERS Safety Report 25372743 (Version 2)
Quarter: 2025Q2

REPORT INFORMATION
  Report Type: Report from Study
  Country: CA (occurrence: CA)
  Receive Date: 20250529
  Receipt Date: 20250530
  Transmission Date: 20250717
  Serious: Yes (Other)
  Sender: ABBVIE
  Company Number: CA-ABBVIE-6301787

PATIENT
  Sex: Female

DRUGS (1)
  1. SKYRIZI [Suspect]
     Active Substance: RISANKIZUMAB-RZAA
     Indication: Crohn^s disease
     Dosage: THEN 360 MILLIGRAMS SUBCUTANEOUSLY Q8 WEEKS
     Route: 042

REACTIONS (2)
  - Localised infection [Recovered/Resolved]
  - Ingrowing nail [Unknown]
